FAERS Safety Report 25214697 (Version 1)
Quarter: 2025Q2

REPORT INFORMATION
  Report Type: Spontaneous
  Country: US (occurrence: None)
  Receive Date: 20250417
  Receipt Date: 20250417
  Transmission Date: 20250717
  Serious: No
  Sender: FDA-CTU
  Company Number: None

PATIENT
  Age: 25 Year
  Sex: Female

DRUGS (1)
  1. GADOBUTROL [Suspect]
     Active Substance: GADOBUTROL
     Indication: Imaging procedure
     Dates: start: 20250128, end: 20250128

REACTIONS (2)
  - Cough [None]
  - Rash [None]

NARRATIVE: CASE EVENT DATE: 20250128
